FAERS Safety Report 22294922 (Version 1)
Quarter: 2023Q2

REPORT INFORMATION
  Report Type: Spontaneous
  Country: US (occurrence: US)
  Receive Date: 20230508
  Receipt Date: 20230508
  Transmission Date: 20230722
  Serious: No
  Sender: FDA-Public Use
  Company Number: US-TEVA-2023-US-2880250

PATIENT
  Sex: Female

DRUGS (2)
  1. COPAXONE [Suspect]
     Active Substance: GLATIRAMER ACETATE
     Indication: Product used for unknown indication
     Route: 065
     Dates: start: 2013
  2. COPAXONE [Suspect]
     Active Substance: GLATIRAMER ACETATE
     Dosage: 3 TIMES A WEEK 40MG
     Dates: start: 2018

REACTIONS (7)
  - Injection site reaction [Unknown]
  - Erythema [Unknown]
  - Feeling hot [Unknown]
  - Dyspnoea [Recovered/Resolved]
  - Tremor [Recovered/Resolved]
  - Product quality issue [Unknown]
  - Intentional dose omission [Unknown]

NARRATIVE: CASE EVENT DATE: 20230414
